FAERS Safety Report 10013501 (Version 2)
Quarter: 2014Q1

REPORT INFORMATION
  Report Type: Spontaneous
  Country: MX (occurrence: MX)
  Receive Date: 20140314
  Receipt Date: 20140314
  Transmission Date: 20141002
  Serious: Yes (Hospitalization, Other)
  Sender: FDA-Public Use
  Company Number: MX-ABBVIE-14P-107-1202637-00

PATIENT
  Age: 41 Year
  Sex: Female

DRUGS (7)
  1. HUMIRA [Suspect]
     Indication: COLITIS ULCERATIVE
     Route: 058
     Dates: start: 2011
  2. HUMIRA [Suspect]
     Route: 058
  3. HUMIRA [Suspect]
     Route: 058
     Dates: end: 201212
  4. HUMIRA [Suspect]
     Route: 058
     Dates: end: 201402
  5. HYDROCORTISONE [Concomitant]
     Indication: COLITIS ULCERATIVE
     Dates: start: 201312
  6. PREDNISONE [Concomitant]
     Indication: COLITIS ULCERATIVE
     Dates: start: 201312
  7. MESALAZINE [Concomitant]
     Indication: COLITIS ULCERATIVE

REACTIONS (4)
  - Weight decreased [Unknown]
  - Peritoneal tuberculosis [Recovered/Resolved]
  - Abdominal pain [Unknown]
  - Pelvic pain [Unknown]
